FAERS Safety Report 12420176 (Version 1)
Quarter: 2016Q2

REPORT INFORMATION
  Report Type: Spontaneous
  Country: US (occurrence: US)
  Receive Date: 20160531
  Receipt Date: 20160531
  Transmission Date: 20160815
  Serious: Yes (Other)
  Sender: FDA-Public Use
  Company Number: US-DRREDDYS-USA/USA/16/0080172

PATIENT
  Age: 16 Year
  Sex: Male
  Weight: 65 kg

DRUGS (4)
  1. ISOTRETINOIN NOT OTHERWISE SPECIFIED [Suspect]
     Active Substance: ISOTRETINOIN
     Indication: ACNE
     Route: 065
  2. ISOTRETINOIN NOT OTHERWISE SPECIFIED [Suspect]
     Active Substance: ISOTRETINOIN
     Route: 065
  3. MINOCYCLINE HYDROCHLORIDE. [Suspect]
     Active Substance: MINOCYCLINE HYDROCHLORIDE
     Indication: ACNE
     Route: 065
  4. PREDNISONE. [Suspect]
     Active Substance: PREDNISONE
     Indication: PRODUCT USED FOR UNKNOWN INDICATION
     Route: 065

REACTIONS (9)
  - Diarrhoea [Recovered/Resolved]
  - Blood alkaline phosphatase increased [Recovered/Resolved]
  - Acne [Unknown]
  - Photosensitivity reaction [Unknown]
  - Blood triglycerides increased [Recovered/Resolved]
  - Therapeutic response decreased [Unknown]
  - Cheilitis [Unknown]
  - Dermatitis [Unknown]
  - Xerosis [Unknown]
